FAERS Safety Report 4315377-5 (Version None)
Quarter: 2004Q1

REPORT INFORMATION
  Report Type: 
  Country: None (occurrence: None)
  Receive Date: 20040309
  Receipt Date: 20040227
  Transmission Date: 20041129
  Serious: Yes (Disabling)
  Sender: FDA-Public Use
  Company Number: FR-SHR-04-021355

PATIENT
  Age: 68 Year
  Sex: Male
  Weight: 75 kg

DRUGS (6)
  1. CAMPATH [Suspect]
     Indication: CHRONIC LYMPHOCYTIC LEUKAEMIA
     Dosage: 30 MG, 1 DOSE, INTRAVENOUS
     Route: 042
     Dates: start: 20040114, end: 20040206
  2. BACTRIM [Concomitant]
  3. ACYCLOVIR [Concomitant]
  4. ANXIOLYTICS [Concomitant]
  5. ANTI-HISTAMINE TAB [Concomitant]
  6. PERMIXON (SERENOA REPENS) [Concomitant]

REACTIONS (3)
  - AUDIOGRAM ABNORMAL [None]
  - DEAFNESS BILATERAL [None]
  - HYPOACUSIS [None]
